FAERS Safety Report 21360412 (Version 1)
Quarter: 2022Q3

REPORT INFORMATION
  Report Type: Spontaneous
  Country: US (occurrence: None)
  Receive Date: 20220921
  Receipt Date: 20220921
  Transmission Date: 20221027
  Serious: Yes (Death, Hospitalization)
  Sender: FDA-Public Use
  Company Number: None

PATIENT
  Sex: Male
  Weight: 107.6 kg

DRUGS (2)
  1. AXITINIB [Suspect]
     Active Substance: AXITINIB
     Dates: start: 20220803, end: 20220824
  2. PEMBROLIZUMAB [Suspect]
     Active Substance: PEMBROLIZUMAB
     Dates: start: 20220803

REACTIONS (11)
  - Fall [None]
  - Asthenia [None]
  - Decreased appetite [None]
  - Stomatitis [None]
  - Decubitus ulcer [None]
  - Dehydration [None]
  - Metastatic neoplasm [None]
  - Mental status changes [None]
  - Pain [None]
  - Infection [None]
  - Hospice care [None]

NARRATIVE: CASE EVENT DATE: 20220916
